FAERS Safety Report 9031293 (Version 3)
Quarter: 2013Q1

REPORT INFORMATION
  Report Type: Spontaneous
  Country: US (occurrence: US)
  Receive Date: 20130124
  Receipt Date: 20130313
  Transmission Date: 20140127
  Serious: Yes (Hospitalization, Other)
  Sender: FDA-Public Use
  Company Number: US-009507513-1301USA009875

PATIENT
  Sex: Female

DRUGS (2)
  1. PEG-INTRON [Suspect]
     Indication: HEPATITIS C
     Dosage: UNK, REDIPEN
     Dates: start: 20130110, end: 20130205
  2. RIBAVIRIN [Suspect]
     Indication: HEPATITIS C
     Dosage: UNK
     Dates: start: 20130110, end: 20130205

REACTIONS (15)
  - Overdose [Unknown]
  - Fall [Unknown]
  - Contusion [Unknown]
  - Pain [Unknown]
  - Asthenia [Unknown]
  - Mental disorder [Unknown]
  - Dizziness [Unknown]
  - Back pain [Unknown]
  - Abdominal pain [Unknown]
  - Abdominal distension [Unknown]
  - Oedema [Unknown]
  - Connective tissue disorder [Unknown]
  - Immune system disorder [Unknown]
  - Asthenia [Unknown]
  - Pain [Unknown]
